FAERS Safety Report 6729092-1 (Version None)
Quarter: 2010Q2

REPORT INFORMATION
  Report Type: 
  Country: None (occurrence: None)
  Receive Date: 20100517
  Receipt Date: 20100325
  Transmission Date: 20101027
  Serious: No
  Sender: FDA-Public Use
  Company Number: US-ABBOTT-10P-163-0634648-00

PATIENT
  Sex: Male
  Weight: 97.61 kg

DRUGS (19)
  1. SIMCOR [Suspect]
     Indication: HIGH DENSITY LIPOPROTEIN DECREASED
     Dosage: 1000/20MG
     Route: 048
     Dates: start: 20100301
  2. SIMCOR [Suspect]
     Indication: LOW DENSITY LIPOPROTEIN INCREASED
  3. GREEN TEA [Concomitant]
     Indication: DRUG USE FOR UNKNOWN INDICATION
  4. GARLIC [Concomitant]
     Indication: DRUG USE FOR UNKNOWN INDICATION
  5. RAMIPRIL [Concomitant]
     Indication: DRUG USE FOR UNKNOWN INDICATION
  6. SCALP/SKIN TOPICALS [Concomitant]
     Indication: DRUG USE FOR UNKNOWN INDICATION
  7. ALEVE (CAPLET) [Concomitant]
     Indication: DRUG USE FOR UNKNOWN INDICATION
  8. M.V.I. [Concomitant]
     Indication: DRUG USE FOR UNKNOWN INDICATION
  9. VIT C [Concomitant]
     Indication: DRUG USE FOR UNKNOWN INDICATION
  10. VIT D [Concomitant]
     Indication: DRUG USE FOR UNKNOWN INDICATION
  11. VIT E [Concomitant]
     Indication: DRUG USE FOR UNKNOWN INDICATION
  12. FOLIC ACID [Concomitant]
     Indication: DRUG USE FOR UNKNOWN INDICATION
  13. SELENIUM [Concomitant]
     Indication: DRUG USE FOR UNKNOWN INDICATION
  14. CALCIUM [Concomitant]
     Indication: DRUG USE FOR UNKNOWN INDICATION
  15. LUTEIN [Concomitant]
     Indication: DRUG USE FOR UNKNOWN INDICATION
  16. FLAX SEED [Concomitant]
     Indication: DRUG USE FOR UNKNOWN INDICATION
  17. LYCOPENE [Concomitant]
     Indication: DRUG USE FOR UNKNOWN INDICATION
  18. COQ10 [Concomitant]
     Indication: DRUG USE FOR UNKNOWN INDICATION
  19. ASPIRIN [Concomitant]
     Indication: DRUG USE FOR UNKNOWN INDICATION

REACTIONS (2)
  - ERYTHEMA [None]
  - PRURITUS [None]
